FAERS Safety Report 21728047 (Version 5)
Quarter: 2025Q1

REPORT INFORMATION
  Report Type: Spontaneous
  Country: US (occurrence: US)
  Receive Date: 20221214
  Receipt Date: 20250131
  Transmission Date: 20250408
  Serious: No
  Sender: PFIZER
  Company Number: US-PFIZER INC-PV202200112545

PATIENT
  Age: 76 Year
  Sex: Female

DRUGS (1)
  1. XELJANZ XR [Suspect]
     Active Substance: TOFACITINIB CITRATE
     Indication: Rheumatoid arthritis
     Dosage: 11 MG, DAILY
     Route: 048

REACTIONS (4)
  - Back pain [Recovered/Resolved]
  - Musculoskeletal stiffness [Recovered/Resolved]
  - Arthralgia [Not Recovered/Not Resolved]
  - Hypertension [Unknown]
